FAERS Safety Report 5424958-7 (Version None)
Quarter: 2007Q3

REPORT INFORMATION
  Report Type: 
  Country: None (occurrence: None)
  Receive Date: 20070824
  Receipt Date: 20070822
  Transmission Date: 20080115
  Serious: Yes (Congenital Anomaly)
  Sender: FDA-Public Use
  Company Number: A0676085A

PATIENT

DRUGS (6)
  1. COMBIVIR [Suspect]
     Indication: HIV INFECTION
     Dosage: 900MG PER DAY
     Dates: start: 20070315
  2. KALETRA [Concomitant]
     Indication: HIV INFECTION
     Dosage: 999.6MG PER DAY
     Dates: start: 20070101, end: 20070215
  3. TRUVADA [Concomitant]
     Indication: HIV INFECTION
     Dosage: 500MG PER DAY
     Dates: start: 20070101, end: 20070215
  4. VIRACEPT [Concomitant]
     Indication: HIV INFECTION
     Dosage: 2500MG PER DAY
     Dates: start: 20070101, end: 20070215
  5. NORVIR [Concomitant]
     Indication: HIV INFECTION
     Dosage: 200MG PER DAY
     Dates: start: 20070315, end: 20070330
  6. REYATAZ [Concomitant]
     Indication: HIV INFECTION
     Dosage: 600MG PER DAY
     Dates: start: 20070501, end: 20070515

REACTIONS (2)
  - DRUG EXPOSURE DURING PREGNANCY [None]
  - TALIPES [None]
